FAERS Safety Report 6177385-1 (Version None)
Quarter: 2009Q2

REPORT INFORMATION
  Report Type: 
  Country: None (occurrence: None)
  Receive Date: 20090501
  Receipt Date: 20090501
  Transmission Date: 20091009
  Serious: Yes (Hospitalization, Other)
  Sender: FDA-Public Use
  Company Number: None

PATIENT
  Age: 12 Year
  Sex: Male

DRUGS (6)
  1. METHOTREXATE [Suspect]
     Dosage: 5 G/M2, UNKNOWN, INTRAVENOUS
     Route: 042
  2. MERCAPTOPURINE [Concomitant]
  3. FUROSEMIDE [Concomitant]
  4. (PARACETAMOL) [Concomitant]
  5. ACYCLOVIR SODIUM [Concomitant]
  6. ONDANSETRON [Concomitant]

REACTIONS (2)
  - RASH [None]
  - RENAL FAILURE ACUTE [None]
